FAERS Safety Report 5238387-2 (Version None)
Quarter: 2007Q1

REPORT INFORMATION
  Report Type: 
  Country: None (occurrence: None)
  Receive Date: 20061208
  Receipt Date: 20050318
  Transmission Date: 20070707
  Serious: Yes (Other)
  Sender: FDA-Public Use
  Company Number: 2005UW04334

PATIENT
  Sex: Female
  Weight: 104.32 kg

DRUGS (8)
  1. CRESTOR [Suspect]
     Indication: BLOOD CHOLESTEROL INCREASED
     Dosage: 10 MG DAILY PO
     Route: 048
  2. CRESTOR [Suspect]
     Indication: BLOOD CHOLESTEROL INCREASED
     Dosage: 5 MG PO
     Route: 048
  3. SYNTHROID [Concomitant]
  4. INDERAL LA [Concomitant]
  5. NORVASC [Concomitant]
  6. DIOVAN [Concomitant]
  7. ZYRTEC [Concomitant]
  8. RHINOCORT [Concomitant]

REACTIONS (3)
  - BONE PAIN [None]
  - FATIGUE [None]
  - MYALGIA [None]
